FAERS Safety Report 7500777-2 (Version None)
Quarter: 2011Q2

REPORT INFORMATION
  Report Type: 
  Country: None (occurrence: None)
  Receive Date: 20110524
  Receipt Date: 20110509
  Transmission Date: 20111010
  Serious: Yes (Other)
  Sender: FDA-Public Use
  Company Number: PHHY2011US41394

PATIENT
  Age: 62 Year
  Sex: Male

DRUGS (3)
  1. ENTACAPONE [Suspect]
     Indication: PARKINSON'S DISEASE
     Dosage: 400 MG/DAY
  2. L-DOPA [Concomitant]
     Indication: PARKINSON'S DISEASE
     Dosage: 1200 MG/DAY
  3. CARBIDOPA [Concomitant]
     Indication: PARKINSON'S DISEASE

REACTIONS (3)
  - EUPHORIC MOOD [None]
  - SLEEP DISORDER [None]
  - AGITATION [None]
